FAERS Safety Report 21446491 (Version 1)
Quarter: 2022Q4

REPORT INFORMATION
  Report Type: Spontaneous
  Country: US (occurrence: US)
  Receive Date: 20221012
  Receipt Date: 20221012
  Transmission Date: 20230113
  Serious: No
  Sender: FDA-Public Use
  Company Number: US-SA-SAC20221006001281

PATIENT
  Sex: Male

DRUGS (5)
  1. DUPIXENT [Suspect]
     Active Substance: DUPILUMAB
     Indication: Dermatitis atopic
     Dosage: UNK
     Route: 065
  2. TRIAMCINOLONE [Concomitant]
     Active Substance: TRIAMCINOLONE
     Dosage: UNK
  3. OPZELURA [Concomitant]
     Active Substance: RUXOLITINIB PHOSPHATE
     Dosage: UNK
  4. MUPIROCIN [Concomitant]
     Active Substance: MUPIROCIN
     Dosage: UNK
  5. CIBINQO [Concomitant]
     Active Substance: ABROCITINIB
     Dosage: 1 DF, QD
     Route: 048

REACTIONS (6)
  - Exfoliative rash [Unknown]
  - Rash pruritic [Unknown]
  - Rash erythematous [Unknown]
  - Rash [Unknown]
  - Skin weeping [Unknown]
  - Drug ineffective [Unknown]
